FAERS Safety Report 6560368-7 (Version None)
Quarter: 2010Q1

REPORT INFORMATION
  Report Type: 
  Country: None (occurrence: None)
  Receive Date: 20100129
  Receipt Date: 20091013
  Transmission Date: 20100710
  Serious: No
  Sender: FDA-Public Use
  Company Number: US-ABBOTT-09P-163-0598946-00

PATIENT
  Sex: Male

DRUGS (5)
  1. HUMIRA [Suspect]
     Indication: ANKYLOSING SPONDYLITIS
     Route: 058
     Dates: start: 20090804, end: 20090901
  2. CELEBREX [Concomitant]
     Indication: ANKYLOSING SPONDYLITIS
  3. SULFASALAZINE [Concomitant]
     Indication: ANKYLOSING SPONDYLITIS
  4. FOLIC ACID [Concomitant]
     Indication: ANKYLOSING SPONDYLITIS
  5. PREDNISONE [Concomitant]
     Indication: ANKYLOSING SPONDYLITIS
     Dosage: TAPERING DOSE

REACTIONS (5)
  - DENTAL CARIES [None]
  - DRUG DOSE OMISSION [None]
  - HAEMORRHAGE [None]
  - PAIN IN JAW [None]
  - TOOTH INJURY [None]
